FAERS Safety Report 6095499-1 (Version None)
Quarter: 2009Q1

REPORT INFORMATION
  Report Type: 
  Country: None (occurrence: None)
  Receive Date: 20090227
  Receipt Date: 20080415
  Transmission Date: 20090719
  Serious: Yes (Disabling, Other)
  Sender: FDA-Public Use
  Company Number: A0722864A

PATIENT
  Age: 14 Year
  Sex: Female

DRUGS (2)
  1. LAMICTAL [Suspect]
     Indication: BIPOLAR DISORDER
     Dosage: 25MG PER DAY
     Route: 048
     Dates: start: 20080325, end: 20080409
  2. NO CONCURRENT MEDICATION [Concomitant]

REACTIONS (8)
  - ABDOMINAL PAIN [None]
  - DIZZINESS [None]
  - FEELING HOT [None]
  - HEADACHE [None]
  - LIP SWELLING [None]
  - LYMPHADENOPATHY [None]
  - NASAL CONGESTION [None]
  - STEVENS-JOHNSON SYNDROME [None]
